FAERS Safety Report 11914096 (Version 1)
Quarter: 2016Q1

REPORT INFORMATION
  Report Type: Spontaneous
  Country: US (occurrence: US)
  Receive Date: 20160113
  Receipt Date: 20160113
  Transmission Date: 20160526
  Serious: No
  Sender: FDA-Public Use
  Company Number: US-BAYER-2016-007080

PATIENT
  Age: 66 Year
  Sex: Male
  Weight: 87.75 kg

DRUGS (1)
  1. ALEVE [Suspect]
     Active Substance: NAPROXEN SODIUM
     Indication: MYALGIA
     Dosage: 5 DF, QD
     Route: 048
     Dates: start: 20151228, end: 20160112

REACTIONS (3)
  - Abdominal discomfort [None]
  - Therapeutic response unexpected [None]
  - Product use issue [None]

NARRATIVE: CASE EVENT DATE: 20151228
